FAERS Safety Report 11222442 (Version 2)
Quarter: 2015Q3

REPORT INFORMATION
  Report Type: Spontaneous
  Country: IT (occurrence: IT)
  Receive Date: 20150626
  Receipt Date: 20150819
  Transmission Date: 20151125
  Serious: Yes (Hospitalization)
  Sender: FDA-Public Use
  Company Number: IT-BRISTOL-MYERS SQUIBB COMPANY-BMS-2015-039159

PATIENT
  Age: 92 Year
  Sex: Male

DRUGS (3)
  1. COUMADIN [Suspect]
     Active Substance: WARFARIN SODIUM
     Indication: THROMBOSIS
     Dosage: 5 MG, QD
     Route: 048
     Dates: start: 20140101, end: 20141103
  2. AUGMENTIN [Suspect]
     Active Substance: AMOXICILLIN\CLAVULANATE POTASSIUM
     Indication: LOWER RESPIRATORY TRACT INFECTION
     Dosage: 2 MG, QD
     Route: 048
     Dates: start: 20141027, end: 20141031
  3. ROCEFIN [Suspect]
     Active Substance: CEFTRIAXONE SODIUM
     Indication: LOWER RESPIRATORY TRACT INFECTION
     Dosage: 1 G, QD
     Route: 030
     Dates: start: 20141027, end: 20141031

REACTIONS (4)
  - Hallucination [Unknown]
  - International normalised ratio increased [Unknown]
  - Pyrexia [Unknown]
  - Confusional state [Unknown]

NARRATIVE: CASE EVENT DATE: 20141103
